FAERS Safety Report 20393185 (Version 1)
Quarter: 2022Q1

REPORT INFORMATION
  Report Type: Report from Study
  Country: MX (occurrence: MX)
  Receive Date: 20220128
  Receipt Date: 20220128
  Transmission Date: 20220423
  Serious: Yes (Other)
  Sender: FDA-Public Use
  Company Number: MX-NOVARTISPH-NVSC2021MX301293

PATIENT
  Sex: Female
  Weight: 61 kg

DRUGS (2)
  1. METFORMIN HYDROCHLORIDE\VILDAGLIPTIN [Suspect]
     Active Substance: METFORMIN HYDROCHLORIDE\VILDAGLIPTIN
     Indication: Diabetes mellitus
     Dosage: 1 DOSAGE FORM, Q12H
     Route: 048
     Dates: start: 201101
  2. CALCITRIOL [Concomitant]
     Active Substance: CALCITRIOL
     Indication: Bone disorder
     Dosage: 1 DOSAGE FORM, Q24H
     Route: 048
     Dates: start: 201101

REACTIONS (4)
  - Glaucoma [Not Recovered/Not Resolved]
  - Visual impairment [Not Recovered/Not Resolved]
  - Blood glucose increased [Unknown]
  - Blood glucose decreased [Unknown]

NARRATIVE: CASE EVENT DATE: 20140101
